FAERS Safety Report 21561390 (Version 1)
Quarter: 2022Q4

REPORT INFORMATION
  Report Type: Spontaneous
  Country: CN (occurrence: CN)
  Receive Date: 20221107
  Receipt Date: 20221107
  Transmission Date: 20230113
  Serious: Yes (Other)
  Sender: FDA-Public Use
  Company Number: CN-MYLANLABS-2022M1121371

PATIENT
  Age: 67 Year
  Sex: Male

DRUGS (3)
  1. LIPITOR [Suspect]
     Active Substance: ATORVASTATIN CALCIUM
     Indication: Cerebral infarction
     Dosage: 20 MILLIGRAM, QD
     Route: 048
     Dates: start: 20221025, end: 20221025
  2. ASPIRIN [Suspect]
     Active Substance: ASPIRIN
     Indication: Cerebral infarction
     Dosage: 100 MILLIGRAM, QD
     Route: 048
     Dates: start: 20221025, end: 20221025
  3. CLOPIDOGREL BISULFATE [Suspect]
     Active Substance: CLOPIDOGREL BISULFATE
     Indication: Cerebral infarction
     Dosage: 75 MILLIGRAM, QD
     Route: 048
     Dates: start: 20221025, end: 20221025

REACTIONS (5)
  - Flushing [Recovering/Resolving]
  - Vomiting [Recovering/Resolving]
  - Speech disorder [Recovering/Resolving]
  - Nausea [Recovering/Resolving]
  - Muscular weakness [Recovering/Resolving]

NARRATIVE: CASE EVENT DATE: 20221025
